FAERS Safety Report 8158260-X (Version None)
Quarter: 2012Q1

REPORT INFORMATION
  Report Type: 
  Country: None (occurrence: None)
  Receive Date: 20120223
  Receipt Date: 20120213
  Transmission Date: 20120608
  Serious: Yes (Hospitalization, Other)
  Sender: FDA-Public Use
  Company Number: US-BIOGENIDEC-2008BI028789

PATIENT
  Age: 54 Year
  Sex: Male

DRUGS (9)
  1. TRAZODONE HYDROCHLORIDE [Concomitant]
     Indication: SLEEP DISORDER
  2. SIMVASTATIN [Concomitant]
     Indication: BLOOD CHOLESTEROL INCREASED
  3. FENOFIBRATE [Concomitant]
     Indication: PRODUCT USED FOR UNKNOWN INDICATION
  4. AVONEX [Suspect]
     Route: 030
  5. LEVETIRACETAM [Concomitant]
     Indication: PRODUCT USED FOR UNKNOWN INDICATION
  6. CLONAZEPAM [Concomitant]
     Indication: CONVULSION
  7. VENLAFAXINE [Concomitant]
     Indication: ANXIETY
  8. AVONEX [Suspect]
     Indication: MULTIPLE SCLEROSIS
     Route: 030
     Dates: start: 20111216
  9. AVONEX [Suspect]
     Route: 030
     Dates: start: 20000930

REACTIONS (5)
  - HEAT STROKE [None]
  - CONVULSION [None]
  - CYSTITIS [None]
  - DEHYDRATION [None]
  - GRAND MAL CONVULSION [None]
